FAERS Safety Report 18079693 (Version 1)
Quarter: 2020Q3

REPORT INFORMATION
  Report Type: Spontaneous
  Country: US (occurrence: US)
  Receive Date: 20200728
  Receipt Date: 20200728
  Transmission Date: 20201103
  Serious: No
  Sender: FDA-Public Use
  Company Number: None

PATIENT
  Age: 23 Year
  Sex: Female
  Weight: 90 kg

DRUGS (1)
  1. SCENT THEORY ? KEEP CLEAN MOISTURIZING HAND SANITIZER [Suspect]
     Active Substance: ALCOHOL
     Indication: INFECTION PROPHYLAXIS
     Dates: start: 20200501, end: 20200727

REACTIONS (2)
  - Headache [None]
  - Nausea [None]
